FAERS Safety Report 23153636 (Version 1)
Quarter: 2023Q4

REPORT INFORMATION
  Report Type: Report from Study
  Country: US (occurrence: US)
  Receive Date: 20231107
  Receipt Date: 20231107
  Transmission Date: 20240109
  Serious: Yes (Other)
  Sender: FDA-Public Use
  Company Number: US-UCBSA-2023048754

PATIENT
  Age: 40 Year
  Sex: Female

DRUGS (1)
  1. CERTOLIZUMAB PEGOL [Suspect]
     Active Substance: CERTOLIZUMAB PEGOL
     Indication: Product used for unknown indication
     Dosage: 400 MILLIGRAM, EV 4 WEEKS
     Dates: start: 20230801, end: 20231011

REACTIONS (4)
  - Vulval abscess [Not Recovered/Not Resolved]
  - Abscess drainage [Not Recovered/Not Resolved]
  - Therapy interrupted [Unknown]
  - Loss of employment [Unknown]

NARRATIVE: CASE EVENT DATE: 20230801
